FAERS Safety Report 8990374 (Version 2)
Quarter: 2013Q4

REPORT INFORMATION
  Report Type: Spontaneous
  Country: GB (occurrence: GB)
  Receive Date: 20121228
  Receipt Date: 20131021
  Transmission Date: 20140711
  Serious: Yes (Death, Other)
  Sender: FDA-Public Use
  Company Number: GB-TEVA-377121ISR

PATIENT
  Sex: Male
  Weight: 118 kg

DRUGS (21)
  1. AMITRIPTYLINE [Suspect]
     Indication: FACIAL PAIN
     Dosage: 10 MILLIGRAM DAILY; FIRST PRESCRIBED 10MG AT NIGHT.
  2. AMITRIPTYLINE [Suspect]
     Dosage: 20 MILLIGRAM DAILY; DOSE INCREASE TO 20 MG AT NIGHT. LAST PRESCRIPTION 10/11/2008
     Dates: start: 20080609
  3. AMITRIPTYLINE [Suspect]
     Dosage: 50 MILLIGRAM DAILY; RESTARTED 27/02/2010. DOSE INCREASED TO 150MG
     Dates: start: 20100227
  4. AMITRIPTYLINE [Suspect]
     Dosage: 150 MILLIGRAM DAILY; DOSE INCREASED TO 150MG
  5. AMITRIPTYLINE [Suspect]
     Dosage: 200 MILLIGRAM DAILY; FINALLY TO 200MG DAILY
     Dates: start: 20110706
  6. AMLODIPINE [Concomitant]
     Indication: HYPERTENSION
  7. LOSARTAN AND HYDROCHLOROTHIAZIDE [Concomitant]
     Indication: HYPERTENSION
  8. DIAZEPAM [Concomitant]
     Dosage: 20 MILLIGRAM DAILY;
  9. PREDNISOLONE [Concomitant]
  10. BETAHISTINE [Concomitant]
     Indication: DIZZINESS
     Dosage: 48 MILLIGRAM DAILY;
  11. CIPROFLOXACIN [Concomitant]
     Indication: PROPHYLAXIS
     Dosage: 1000 MILLIGRAM DAILY;
  12. BEZAFIBRATE [Concomitant]
     Indication: BLOOD CHOLESTEROL INCREASED
     Dosage: 800 MILLIGRAM DAILY;
  13. RABEPRAZOLE [Concomitant]
     Indication: GASTRIC PH DECREASED
     Dosage: 20 MILLIGRAM DAILY;
  14. BENZYDAMINE [Concomitant]
  15. GABAPENTIN [Concomitant]
     Indication: NEURALGIA
     Dosage: 900 MILLIGRAM DAILY;
  16. CARBAMAZEPINE [Concomitant]
  17. PROPRANOLOL [Concomitant]
     Indication: HYPERTENSION
     Dosage: 320 MILLIGRAM DAILY;
  18. CO-CODAMOL [Concomitant]
  19. LACTULOSE [Concomitant]
     Dosage: PER NEED
  20. MOVICOL [Concomitant]
  21. CARBOCISTEINE [Concomitant]
     Indication: BRONCHIECTASIS
     Dosage: 2250 MILLIGRAM DAILY;

REACTIONS (2)
  - Sudden death [Fatal]
  - Drug level increased [Not Recovered/Not Resolved]
